FAERS Safety Report 18917354 (Version 2)
Quarter: 2021Q1

REPORT INFORMATION
  Report Type: Spontaneous
  Country: IT (occurrence: IT)
  Receive Date: 20210219
  Receipt Date: 20210326
  Transmission Date: 20210420
  Serious: Yes (Other)
  Sender: FDA-Public Use
  Company Number: NVSC2021IT038865

PATIENT

DRUGS (2)
  1. SECUKINUMAB. [Suspect]
     Active Substance: SECUKINUMAB
     Dosage: 2 DOSES OF 150 MG, Q4W
     Route: 058
  2. SECUKINUMAB. [Suspect]
     Active Substance: SECUKINUMAB
     Indication: PSORIASIS
     Dosage: 2 DOSE OF 150 MG, QW
     Route: 058

REACTIONS (1)
  - Transitional cell carcinoma [Unknown]
